FAERS Safety Report 8603568-4 (Version None)
Quarter: 2012Q3

REPORT INFORMATION
  Report Type: 
  Country: None (occurrence: None)
  Receive Date: 20120817
  Receipt Date: 20120810
  Transmission Date: 20120928
  Serious: Yes (Other)
  Sender: FDA-Public Use
  Company Number: PHHY2012AU070686

PATIENT
  Age: 10 Month
  Sex: Male

DRUGS (2)
  1. PROPRANOLOL [Suspect]
     Dosage: 2 MG/KG, PER DAY
  2. PROPRANOLOL [Suspect]
     Indication: HAEMANGIOMA
     Dosage: 1 MG/KG, PER DAY

REACTIONS (3)
  - BRONCHIOLITIS [None]
  - COUGH [None]
  - WHEEZING [None]
